FAERS Safety Report 5599603-0 (Version None)
Quarter: 2008Q1

REPORT INFORMATION
  Report Type: 
  Country: None (occurrence: None)
  Receive Date: 20080118
  Receipt Date: 20080105
  Transmission Date: 20080703
  Serious: Yes (Other)
  Sender: FDA-Public Use
  Company Number: 022345

PATIENT
  Age: 19 Year
  Sex: Male

DRUGS (3)
  1. CLARAVIS [Suspect]
     Indication: ACNE
     Dosage: 40 MG,QD, ORAL; 60 MG,QD, ORAL; 40MG,BID,ORAL
     Route: 048
     Dates: start: 20071001, end: 20071101
  2. CLARAVIS [Suspect]
     Indication: ACNE
     Dosage: 40 MG,QD, ORAL; 60 MG,QD, ORAL; 40MG,BID,ORAL
     Route: 048
     Dates: start: 20071101, end: 20071201
  3. CLARAVIS [Suspect]
     Indication: ACNE
     Dosage: 40 MG,QD, ORAL; 60 MG,QD, ORAL; 40MG,BID,ORAL
     Route: 048
     Dates: start: 20071201

REACTIONS (3)
  - PREGNANCY OF PARTNER [None]
  - TRANSMISSION OF DRUG VIA SEMEN [None]
  - TREATMENT NONCOMPLIANCE [None]
